FAERS Safety Report 8504923-3 (Version None)
Quarter: 2012Q3

REPORT INFORMATION
  Report Type: 
  Country: None (occurrence: None)
  Receive Date: 20120712
  Receipt Date: 20120706
  Transmission Date: 20120928
  Serious: Yes (Other)
  Sender: FDA-Public Use
  Company Number: PHHY2012MX058899

PATIENT
  Sex: Female

DRUGS (7)
  1. EXFORGE [Suspect]
     Indication: ANGINA PECTORIS
     Dosage: 1 DF (160/12.5 MG), DAILY
     Dates: start: 20120301
  2. ACTONEL [Concomitant]
     Indication: OSTEOPOROSIS
     Dosage: 1 DF, UNK
     Dates: start: 20050101
  3. DIOVAN HCT [Suspect]
     Indication: HYPERTENSION
     Dosage: 1 DF (160/12.5), DAILY
     Dates: start: 20100101
  4. METOPROLOL TARTRATE [Concomitant]
     Indication: HYPERTENSION
     Dosage: 95 MG, QD
     Dates: start: 20100101
  5. ATORVASTATIN [Concomitant]
     Indication: BLOOD CHOLESTEROL INCREASED
     Dosage: 20 MG, QD
  6. NIFEDIPINE [Concomitant]
     Indication: HYPERTENSION
     Dosage: 30 MG, UNK
     Dates: start: 20020101
  7. ASPIRIN [Concomitant]
     Indication: CARDIOVASCULAR DISORDER
     Dosage: 1 DF, QD

REACTIONS (2)
  - BLOOD CHOLESTEROL INCREASED [None]
  - ANGINA PECTORIS [None]
